FAERS Safety Report 5859577-1 (Version None)
Quarter: 2008Q3

REPORT INFORMATION
  Report Type: 
  Country: None (occurrence: None)
  Receive Date: 20080827
  Receipt Date: 20080825
  Transmission Date: 20090109
  Serious: Yes (Other)
  Sender: FDA-Public Use
  Company Number: B0534244A

PATIENT
  Age: 55 Year
  Sex: Male

DRUGS (5)
  1. ESKAZOLE [Suspect]
     Route: 048
     Dates: start: 20061218, end: 20070202
  2. PARKINANE [Concomitant]
     Indication: PARKINSON'S DISEASE
     Route: 065
  3. TRIVASTAL [Concomitant]
     Indication: PARKINSON'S DISEASE
     Route: 065
  4. PROZAC [Concomitant]
     Indication: PARKINSON'S DISEASE
     Route: 065
  5. SELEGILINE HCL [Concomitant]
     Indication: PARKINSON'S DISEASE
     Route: 065

REACTIONS (2)
  - HEPATIC ENZYME INCREASED [None]
  - HEPATITIS [None]
